FAERS Safety Report 9145471 (Version 1)
Quarter: 2013Q1

REPORT INFORMATION
  Report Type: Spontaneous
  Country: US (occurrence: None)
  Receive Date: 20130226
  Receipt Date: 20130226
  Transmission Date: 20140127
  Serious: Yes (Hospitalization)
  Sender: FDA-Public Use
  Company Number: None

PATIENT
  Sex: Female
  Weight: 49.55 kg

DRUGS (2)
  1. CISPLATIN [Suspect]
  2. PACLITAXEL (TAXOL) [Suspect]

REACTIONS (8)
  - Dehydration [None]
  - Hypomagnesaemia [None]
  - Oesophagitis [None]
  - Pneumonia [None]
  - Candida infection [None]
  - Herpes virus infection [None]
  - Vomiting [None]
  - Device malfunction [None]
